FAERS Safety Report 24626838 (Version 1)
Quarter: 2024Q4

REPORT INFORMATION
  Report Type: Spontaneous
  Country: US (occurrence: US)
  Receive Date: 20241115
  Receipt Date: 20241115
  Transmission Date: 20250115
  Serious: No
  Sender: NOVO NORDISK
  Company Number: US-NOVOPROD-1019480

PATIENT
  Sex: Female

DRUGS (1)
  1. NOVOLOG [Suspect]
     Active Substance: INSULIN ASPART
     Indication: Product used for unknown indication
     Dosage: UNK

REACTIONS (5)
  - Haemoglobin increased [Unknown]
  - Blood glucose increased [Unknown]
  - Device delivery system issue [Not Recovered/Not Resolved]
  - Device mechanical issue [Unknown]
  - Device delivery system issue [Not Recovered/Not Resolved]
